FAERS Safety Report 8124710-8 (Version None)
Quarter: 2012Q1

REPORT INFORMATION
  Report Type: 
  Country: None (occurrence: None)
  Receive Date: 20120209
  Receipt Date: 20120202
  Transmission Date: 20120608
  Serious: Yes (Other)
  Sender: FDA-Public Use
  Company Number: US-JNJFOC-20120202905

PATIENT
  Sex: Male
  Weight: 94.35 kg

DRUGS (4)
  1. RISPERDAL CONSTA [Suspect]
     Indication: HALLUCINATION
     Route: 030
     Dates: start: 20090101
  2. UNKNOWN MEDICATION [Concomitant]
     Route: 065
  3. BANOPHEN [Concomitant]
     Route: 065
  4. VALPROIC ACID [Concomitant]
     Route: 065

REACTIONS (3)
  - PRODUCT QUALITY ISSUE [None]
  - ANGER [None]
  - HALLUCINATION [None]
